FAERS Safety Report 18275335 (Version 1)
Quarter: 2020Q3

REPORT INFORMATION
  Report Type: Spontaneous
  Country: GB (occurrence: GB)
  Receive Date: 20200916
  Receipt Date: 20200916
  Transmission Date: 20201103
  Serious: Yes (Hospitalization, Other)
  Sender: FDA-Public Use
  Company Number: GB-GLAXOSMITHKLINE-GB2020GSK177920

PATIENT
  Age: 55 Year
  Sex: Male

DRUGS (2)
  1. SUMATRIPTAN. [Suspect]
     Active Substance: SUMATRIPTAN
     Indication: MIGRAINE
     Dosage: 2 DF (50 MG)
     Route: 048
     Dates: start: 2017
  2. ASPIRIN. [Suspect]
     Active Substance: ASPIRIN
     Indication: ATRIOVENTRICULAR BLOCK
     Dosage: UNK

REACTIONS (13)
  - Myocardial ischaemia [Recovering/Resolving]
  - Hyperhidrosis [Recovering/Resolving]
  - Dyspepsia [Unknown]
  - Troponin I increased [Unknown]
  - Arthralgia [Recovering/Resolving]
  - Fibrin D dimer decreased [Recovering/Resolving]
  - Electrocardiogram T wave inversion [Recovering/Resolving]
  - Arteriospasm coronary [Recovering/Resolving]
  - Acute myocardial infarction [Recovering/Resolving]
  - Chest pain [Recovering/Resolving]
  - Dyspnoea [Recovering/Resolving]
  - Atrioventricular block [Recovering/Resolving]
  - Ventricular hypokinesia [Recovering/Resolving]
